FAERS Safety Report 8773251 (Version 1)
Quarter: 2012Q4

REPORT INFORMATION
  Report Type: 
  Country: GB (occurrence: GB)
  Receive Date: 20120907
  Receipt Date: 20120907
  Transmission Date: 20130627
  Serious: Yes (Other)
  Sender: FDA-Public Use
  Company Number: PHHY2012GB076760

PATIENT
  Sex: Male

DRUGS (1)
  1. AMLODIPINE [Suspect]
     Indication: HYPERTENSION
     Dosage: 5 mg, UNK
     Dates: start: 201107, end: 201203

REACTIONS (7)
  - Onychoclasis [Recovered/Resolved]
  - Vitamin D decreased [Unknown]
  - Drug eruption [Recovering/Resolving]
  - Pruritus [Recovering/Resolving]
  - Pain in extremity [Recovered/Resolved]
  - Arthralgia [Recovered/Resolved]
  - Blood pressure diastolic decreased [Recovering/Resolving]
